FAERS Safety Report 6763699-0 (Version None)
Quarter: 2010Q2

REPORT INFORMATION
  Report Type: 
  Country: None (occurrence: None)
  Receive Date: 20100608
  Receipt Date: 20100526
  Transmission Date: 20101027
  Serious: Yes (Death, Hospitalization)
  Sender: FDA-Public Use
  Company Number: 430052M09USA

PATIENT
  Age: 79 Year
  Sex: Male
  Weight: 64.1 kg

DRUGS (24)
  1. NOVANTRONE [Suspect]
     Indication: PROSTATE CANCER METASTATIC
     Dosage: 21 MG, 1 IN 21 D, INTRAVENOUS (NOT OTHERWISE SPECIFIED)
     Route: 042
     Dates: start: 20090603, end: 20091007
  2. IMC-1121B (INVESTIGATIONAL DRUG) [Suspect]
     Indication: PROSTATE CANCER METASTATIC
     Dosage: 412 MG, 1 IN 1 WK, INTRAVENOUS (NOT OTHERWISE SPECIFIED)
     Route: 042
     Dates: start: 20090603, end: 20091014
  3. PREDNISONE TAB [Suspect]
     Indication: PROSTATE CANCER METASTATIC
     Dosage: 5 MG, 2 IN 1 D, ORAL
     Route: 048
     Dates: start: 20090603, end: 20091019
  4. ASTEPRO [Concomitant]
  5. MEGESTROL ACETATE [Concomitant]
  6. METOPROLOL SUCCINATE [Concomitant]
  7. LISINOPRIL (LISINOPRIL DIHYDRATE) [Concomitant]
  8. ASPIRIN [Concomitant]
  9. CENTRUM SILVER (CENTRUM SILVER /01292501/) [Concomitant]
  10. LUPRON (LUEPRORELIN ACETATE) [Concomitant]
  11. VITAMIN D [Concomitant]
  12. ZOMETA [Concomitant]
  13. TUMS (CALCIUM CARBONATE) [Concomitant]
  14. XALATAN [Concomitant]
  15. LUMIGAN [Concomitant]
  16. FAMOTIDINE [Concomitant]
  17. MOTRIN [Concomitant]
  18. OMEPRAZOLE [Concomitant]
  19. HYDROCHLOROTHIAZIDE [Concomitant]
  20. VENTOLIN [Concomitant]
  21. ADVAIR DISKUS 100/50 [Concomitant]
  22. SPIRIVA [Concomitant]
  23. ISOSORBIDE DINITRATE [Concomitant]
  24. NITROQUICK (GLYCERYL TRINITRATE) [Concomitant]

REACTIONS (21)
  - ACTIVATED PARTIAL THROMBOPLASTIN TIME PROLONGED [None]
  - ASTHENIA [None]
  - BLOOD CREATININE INCREASED [None]
  - BLOOD GLUCOSE INCREASED [None]
  - BLOOD PRESSURE SYSTOLIC INCREASED [None]
  - BLOOD UREA INCREASED [None]
  - CHEST PAIN [None]
  - DYSPNOEA EXERTIONAL [None]
  - HAEMATOCRIT DECREASED [None]
  - HAEMOGLOBIN DECREASED [None]
  - LYMPHOCYTE COUNT DECREASED [None]
  - NEUTROPENIA [None]
  - OCULAR ICTERUS [None]
  - OROPHARYNGEAL PAIN [None]
  - PLATELET COUNT DECREASED [None]
  - PRODUCTIVE COUGH [None]
  - RED BLOOD CELL COUNT DECREASED [None]
  - SINUS TACHYCARDIA [None]
  - TONGUE DISORDER [None]
  - UPPER RESPIRATORY TRACT INFECTION [None]
  - WHITE BLOOD CELL COUNT DECREASED [None]
